FAERS Safety Report 7247250 (Version 3)
Quarter: 2013Q1

REPORT INFORMATION
  Report Type: Spontaneous
  Country: US (occurrence: US)
  Receive Date: 20100115
  Receipt Date: 20130326
  Transmission Date: 20140127
  Serious: Yes (Death, Other)
  Sender: FDA-Public Use
  Company Number: US-PFIZER INC-2010001720

PATIENT
  Age: 23 Year
  Sex: Female

DRUGS (7)
  1. GABAPENTIN [Suspect]
     Dosage: UNK
     Route: 048
  2. ALPRAZOLAM [Suspect]
     Dosage: UNK
     Route: 048
  3. PAROXETINE [Suspect]
     Dosage: UNK
     Route: 048
  4. FLUOXETINE [Suspect]
     Dosage: UNK
     Route: 048
  5. NAPROXEN [Suspect]
     Dosage: UNK
     Route: 048
  6. ZOLPIDEM [Suspect]
     Dosage: UNK
     Route: 048
  7. ACETAMINOPHEN [Suspect]
     Dosage: UNK
     Route: 048

REACTIONS (1)
  - Completed suicide [Fatal]
